FAERS Safety Report 15937232 (Version 1)
Quarter: 2019Q1

REPORT INFORMATION
  Report Type: Report from Study
  Country: GB (occurrence: GB)
  Receive Date: 20190208
  Receipt Date: 20190208
  Transmission Date: 20190417
  Serious: Yes (Other)
  Sender: FDA-Public Use
  Company Number: GB-MYLANLABS-2019M1003874

PATIENT
  Sex: Male

DRUGS (2)
  1. DEXAMETHASONE. [Suspect]
     Active Substance: DEXAMETHASONE
     Indication: CHRONIC LYMPHOCYTIC LEUKAEMIA
     Dosage: PLANNED TO RECEIVE TWELVE 28 DAY CYCLES OF DEXAMETHASONE ON DAYS 1 TO 4
     Route: 048
  2. REVLIMID [Suspect]
     Active Substance: LENALIDOMIDE
     Indication: CHRONIC LYMPHOCYTIC LEUKAEMIA
     Dosage: STARTING DOSE 5MG/DAY AND LATER PLANNED TO ESCALATE TO 10MG/DAY
     Route: 065

REACTIONS (1)
  - Febrile neutropenia [Unknown]
